FAERS Safety Report 8725466 (Version 9)
Quarter: 2016Q1

REPORT INFORMATION
  Report Type: Spontaneous
  Country: CA (occurrence: CA)
  Receive Date: 20120815
  Receipt Date: 20160315
  Transmission Date: 20160526
  Serious: Yes (Hospitalization, Disabling, Other)
  Sender: FDA-Public Use
  Company Number: CA-ROCHE-1098401

PATIENT
  Age: 44 Year
  Sex: Female

DRUGS (8)
  1. PREDNISONE. [Suspect]
     Active Substance: PREDNISONE
     Route: 048
     Dates: start: 20130313
  2. PREDNISONE. [Suspect]
     Active Substance: PREDNISONE
     Dosage: 10 PILLS
     Route: 065
     Dates: start: 20160307
  3. XOLAIR [Suspect]
     Active Substance: OMALIZUMAB
     Route: 058
     Dates: start: 20091113
  4. PREDNISONE. [Suspect]
     Active Substance: PREDNISONE
     Indication: ASTHMA
     Route: 065
     Dates: start: 20111116
  5. PREDNISONE. [Suspect]
     Active Substance: PREDNISONE
     Route: 065
     Dates: start: 201507
  6. XOLAIR [Suspect]
     Active Substance: OMALIZUMAB
     Indication: ASTHMA
     Route: 058
     Dates: start: 20091030
  7. PREDNISONE. [Suspect]
     Active Substance: PREDNISONE
     Route: 042
  8. XOLAIR [Suspect]
     Active Substance: OMALIZUMAB
     Route: 058
     Dates: start: 20160216

REACTIONS (27)
  - Cardiac disorder [Unknown]
  - Feeding disorder [Unknown]
  - Sensitivity to weather change [Unknown]
  - Hypertension [Unknown]
  - Chest pain [Unknown]
  - Respiratory distress [Unknown]
  - Throat irritation [Unknown]
  - Cough [Unknown]
  - Oxygen saturation decreased [Unknown]
  - Loss of consciousness [Unknown]
  - Feeling abnormal [Unknown]
  - Oropharyngeal pain [Unknown]
  - Insomnia [Unknown]
  - Vomiting [Unknown]
  - Malaise [Unknown]
  - Respiratory tract inflammation [Unknown]
  - Palpitations [Recovered/Resolved]
  - Feeling jittery [Unknown]
  - Asthma [Unknown]
  - Dysphonia [Unknown]
  - Dry throat [Unknown]
  - Tremor [Unknown]
  - Heart rate increased [Unknown]
  - Anxiety [Unknown]
  - Body temperature decreased [Unknown]
  - Stress [Unknown]
  - General physical health deterioration [Unknown]

NARRATIVE: CASE EVENT DATE: 20091030
